FAERS Safety Report 8893256 (Version 1)
Quarter: 2012Q4

REPORT INFORMATION
  Report Type: 
  Country: US (occurrence: US)
  Receive Date: 20121107
  Receipt Date: 20121107
  Transmission Date: 20130627
  Serious: No
  Sender: FDA-Public Use
  Company Number: US-AMGEN-USASP2011051649

PATIENT
  Age: 60 Year
  Sex: Female

DRUGS (9)
  1. ENBREL [Suspect]
     Indication: PRODUCT USED FOR UNKNOWN INDICATION
     Dosage: 25 mg, 2 times/wk
  2. SINGULAIR [Concomitant]
     Dosage: 10 mg, UNK
  3. AMBIEN [Concomitant]
     Dosage: 5 mg, UNK
  4. ADVAIR HFA [Concomitant]
     Dosage: UNK
  5. HYDROXYZINE HCL [Concomitant]
     Dosage: 50 mg, UNK
  6. DOXEPIN HCL [Concomitant]
     Dosage: 25 mg, UNK
  7. PLAVIX [Concomitant]
     Dosage: 75 mg, UNK
  8. SPIRIVA HANDIHALER [Concomitant]
     Dosage: UNK
  9. COMBIVENT [Concomitant]
     Dosage: UNK

REACTIONS (3)
  - Sinusitis [Recovered/Resolved]
  - Rash [Unknown]
  - Pruritus [Unknown]
